FAERS Safety Report 18038048 (Version 2)
Quarter: 2020Q3

REPORT INFORMATION
  Report Type: Spontaneous
  Country: JP (occurrence: JP)
  Receive Date: 20200717
  Receipt Date: 20200907
  Transmission Date: 20201103
  Serious: Yes (Death, Hospitalization, Other)
  Sender: FDA-Public Use
  Company Number: JP-009507513-2004JPN002164J

PATIENT
  Age: 75 Year
  Sex: Female
  Weight: 34 kg

DRUGS (3)
  1. CARBOPLATIN. [Concomitant]
     Active Substance: CARBOPLATIN
     Indication: NON-SMALL CELL LUNG CANCER
     Dosage: 390 (UNIT NOT PREOVDED), EVERY 4 WEEKS
     Route: 041
     Dates: start: 20200117, end: 20200331
  2. KEYTRUDA [Suspect]
     Active Substance: PEMBROLIZUMAB
     Indication: NON-SMALL CELL LUNG CANCER
     Dosage: 200 MILLIGRAM, Q3W
     Route: 041
     Dates: start: 20200117, end: 20200401
  3. PACLITAXEL. [Concomitant]
     Active Substance: PACLITAXEL
     Indication: NON-SMALL CELL LUNG CANCER
     Dosage: 120 (UNIT NOT PROEVIDED), 3 TIMES IN 4 WEEKS
     Route: 041
     Dates: start: 20200117, end: 20200331

REACTIONS (3)
  - Ascites [Unknown]
  - Hepatic failure [Fatal]
  - Fall [Unknown]

NARRATIVE: CASE EVENT DATE: 20200413
